FAERS Safety Report 22184464 (Version 1)
Quarter: 2023Q2

REPORT INFORMATION
  Report Type: Other
  Country: IN (occurrence: None)
  Receive Date: 20230407
  Receipt Date: 20230407
  Transmission Date: 20230722
  Serious: Yes (Other)
  Sender: FDA-Public Use
  Company Number: IN-ROCHE-3323498

PATIENT
  Age: 72 Year
  Sex: Female

DRUGS (1)
  1. TOCILIZUMAB [Suspect]
     Active Substance: TOCILIZUMAB
     Indication: Rheumatoid arthritis
     Route: 042
     Dates: start: 20110501

REACTIONS (2)
  - Spinal fracture [Recovered/Resolved with Sequelae]
  - Back pain [Unknown]

NARRATIVE: CASE EVENT DATE: 20230323
